APPROVED DRUG PRODUCT: OVCON-50
Active Ingredient: ETHINYL ESTRADIOL; NORETHINDRONE
Strength: 0.05MG;1MG
Dosage Form/Route: TABLET;ORAL-21
Application: N018128 | Product #001
Applicant: WARNER CHILCOTT INC
Approved: Approved Prior to Jan 1, 1982 | RLD: No | RS: No | Type: DISCN